FAERS Safety Report 7401222-8 (Version None)
Quarter: 2011Q2

REPORT INFORMATION
  Report Type: 
  Country: None (occurrence: None)
  Receive Date: 20110407
  Receipt Date: 20110330
  Transmission Date: 20111010
  Serious: Yes (Hospitalization)
  Sender: FDA-Public Use
  Company Number: JP-AMGEN-JPNCT2011018383

PATIENT
  Age: 69 Year
  Sex: Male

DRUGS (1)
  1. PANITUMUMAB [Suspect]
     Indication: COLORECTAL CANCER
     Dosage: 4.8 MG/KG, Q2WK
     Route: 041
     Dates: start: 20110225

REACTIONS (3)
  - ASTHENIA [None]
  - STOMATITIS [None]
  - DECREASED APPETITE [None]
